FAERS Safety Report 20819485 (Version 1)
Quarter: 2022Q2

REPORT INFORMATION
  Report Type: Spontaneous
  Country: US (occurrence: None)
  Receive Date: 20220512
  Receipt Date: 20220512
  Transmission Date: 20220721
  Serious: Yes (Hospitalization)
  Sender: FDA-Public Use
  Company Number: None

PATIENT
  Age: 78 Year
  Sex: Male
  Weight: 188.3 kg

DRUGS (1)
  1. CISPLATIN [Suspect]
     Active Substance: CISPLATIN
     Dates: end: 20210629

REACTIONS (4)
  - Fatigue [None]
  - Hypophagia [None]
  - Stomatitis [None]
  - Glossodynia [None]

NARRATIVE: CASE EVENT DATE: 20210702
